FAERS Safety Report 25994404 (Version 1)
Quarter: 2025Q4

REPORT INFORMATION
  Report Type: Spontaneous
  Country: JP (occurrence: JP)
  Receive Date: 20251104
  Receipt Date: 20251104
  Transmission Date: 20260117
  Serious: Yes (Death, Other)
  Sender: MERCK SHARP & DOHME LLC
  Company Number: JP-009507513-2345766

PATIENT
  Age: 6 Decade
  Sex: Male

DRUGS (1)
  1. WELIREG [Suspect]
     Active Substance: BELZUTIFAN
     Indication: Clear cell renal cell carcinoma
     Dosage: 120 MG/DAY

REACTIONS (8)
  - Death [Fatal]
  - Malignant pleural effusion [Unknown]
  - Blood creatinine increased [Unknown]
  - Malignant neoplasm progression [Unknown]
  - Anaemia [Unknown]
  - Hypoxia [Unknown]
  - Malaise [Unknown]
  - Therapy change [Unknown]
